FAERS Safety Report 4598358-6 (Version None)
Quarter: 2005Q1

REPORT INFORMATION
  Report Type: 
  Country: None (occurrence: None)
  Receive Date: 20050304
  Receipt Date: 20050114
  Transmission Date: 20050727
  Serious: Yes (Hospitalization)
  Sender: FDA-Public Use
  Company Number: 200510206FR

PATIENT
  Age: 28 Year
  Sex: Female

DRUGS (3)
  1. LANTUS [Suspect]
     Indication: DIABETES MELLITUS INSULIN-DEPENDENT
     Route: 058
     Dates: start: 20041108, end: 20050107
  2. HEPATITIS B VACCINE [Suspect]
     Route: 030
     Dates: start: 20041112, end: 20041112
  3. NOVORAPID [Concomitant]
     Route: 058
     Dates: start: 20041108

REACTIONS (7)
  - AREFLEXIA [None]
  - CHLAMYDIA SEROLOGY POSITIVE [None]
  - DIFFICULTY IN WALKING [None]
  - MOTOR DYSFUNCTION [None]
  - POLYNEUROPATHY [None]
  - RADICULOPATHY [None]
  - VIRUS SEROLOGY TEST POSITIVE [None]
